FAERS Safety Report 4893828-5 (Version None)
Quarter: 2006Q1

REPORT INFORMATION
  Report Type: 
  Country: None (occurrence: None)
  Receive Date: 20060127
  Receipt Date: 20051207
  Transmission Date: 20060701
  Serious: Yes (Other)
  Sender: FDA-Public Use
  Company Number: PHHO2005CL19258

PATIENT
  Age: 65 Year
  Sex: Female

DRUGS (4)
  1. ZELMAC / HTF 919A [Suspect]
     Dates: start: 20051027
  2. AMITRIPTYLINE HCL [Concomitant]
  3. TEGRETOL [Concomitant]
  4. BROMAZEPAM [Concomitant]

REACTIONS (5)
  - COLON CANCER [None]
  - COLON NEOPLASM [None]
  - DERMATITIS ALLERGIC [None]
  - DIVERTICULITIS [None]
  - HYPERSENSITIVITY [None]
